FAERS Safety Report 25568456 (Version 1)
Quarter: 2025Q3

REPORT INFORMATION
  Report Type: Spontaneous
  Country: US (occurrence: US)
  Receive Date: 20250716
  Receipt Date: 20250716
  Transmission Date: 20251021
  Serious: No
  Sender: NOVO NORDISK
  Company Number: US-NOVOPROD-1274496

PATIENT
  Age: 72 Year
  Sex: Male

DRUGS (1)
  1. OZEMPIC [Suspect]
     Active Substance: SEMAGLUTIDE
     Indication: Type 2 diabetes mellitus
     Dosage: 0.25 MG ONCE WEEKLY
     Route: 058
     Dates: start: 20240708

REACTIONS (8)
  - Rhinorrhoea [Unknown]
  - Constipation [Recovered/Resolved]
  - Joint injury [Unknown]
  - Weight fluctuation [Unknown]
  - Confusional state [Unknown]
  - Wrong technique in product usage process [Unknown]
  - Wrong technique in product usage process [Unknown]
  - Drug ineffective [Unknown]
